FAERS Safety Report 7645202-6 (Version None)
Quarter: 2011Q3

REPORT INFORMATION
  Report Type: 
  Country: None (occurrence: None)
  Receive Date: 20110729
  Receipt Date: 20110723
  Transmission Date: 20111222
  Serious: Yes (Death)
  Sender: FDA-Public Use
  Company Number: US-CELGENEUS-163-21880-11072754

PATIENT
  Age: 77 Year
  Sex: Male

DRUGS (11)
  1. DEXAMETHASONE [Concomitant]
     Route: 065
     Dates: start: 20101101
  2. OMEPRAZOLE [Concomitant]
     Route: 065
  3. ARICEPT [Concomitant]
     Route: 065
  4. FUROSEMIDE [Concomitant]
     Route: 065
  5. MORPHINE [Concomitant]
     Route: 065
  6. CITALOPRAM HYDROBROMIDE [Concomitant]
     Route: 065
  7. K-TAB [Concomitant]
     Route: 065
  8. TERAZOSIN HCL [Concomitant]
     Route: 065
  9. REVLIMID [Suspect]
     Indication: MULTIPLE MYELOMA
     Dosage: 10 MILLIGRAM
     Route: 048
     Dates: start: 20101201
  10. FLUTICASONE [Concomitant]
     Route: 045
  11. PROAIR HFA [Concomitant]
     Route: 065

REACTIONS (1)
  - DEATH [None]
